FAERS Safety Report 5421398-1 (Version None)
Quarter: 2007Q3

REPORT INFORMATION
  Report Type: 
  Country: None (occurrence: None)
  Receive Date: 20070821
  Receipt Date: 20070808
  Transmission Date: 20080115
  Serious: Yes (Other)
  Sender: FDA-Public Use
  Company Number: GB-ELI_LILLY_AND_COMPANY-GB200707001402

PATIENT
  Age: 44 Year
  Sex: Female
  Weight: 65 kg

DRUGS (5)
  1. FLUOXETINE [Suspect]
     Indication: DEPRESSION
     Dosage: 20 MG, UNKNOWN
     Route: 048
     Dates: start: 20070529, end: 20070619
  2. AMITRIPTYLINE HCL [Concomitant]
     Dosage: 50 MG, UNKNOWN
     Route: 065
  3. DICLOFENAC [Concomitant]
     Indication: FIBROMYALGIA
     Dosage: 50 MG, OTHER, 3/1 DAILY
     Route: 048
  4. FELODIPINE [Concomitant]
     Indication: HYPERTENSION
     Dosage: 10 MG, UNKNOWN
     Route: 048
     Dates: start: 20070603
  5. LANSOPRAZOLE [Concomitant]
     Indication: PROPHYLAXIS AGAINST GASTROINTESTINAL ULCER
     Dosage: 30 MG, UNKNOWN
     Route: 048

REACTIONS (3)
  - ABDOMINAL DISTENSION [None]
  - JOINT SWELLING [None]
  - OEDEMA PERIPHERAL [None]
